FAERS Safety Report 8083395-X (Version None)
Quarter: 2012Q1

REPORT INFORMATION
  Report Type: 
  Country: None (occurrence: None)
  Receive Date: 20120127
  Receipt Date: 20110117
  Transmission Date: 20120608
  Serious: No
  Sender: FDA-Public Use
  Company Number: US-ABBOTT-11P-163-0698000-00

PATIENT
  Age: 3 Year
  Sex: Female

DRUGS (3)
  1. CELEBREX [Concomitant]
     Indication: ARTHRITIS
  2. HUMIRA [Suspect]
     Indication: JUVENILE ARTHRITIS
     Dates: start: 20101201
  3. METHOTREXATE [Concomitant]
     Indication: ARTHRITIS
     Dosage: WEEKLY

REACTIONS (4)
  - GASTRIC DISORDER [None]
  - VOMITING [None]
  - DIARRHOEA [None]
  - NAUSEA [None]
